FAERS Safety Report 9992427 (Version 5)
Quarter: 2016Q1

REPORT INFORMATION
  Report Type: Spontaneous
  Country: FR (occurrence: FR)
  Receive Date: 20140310
  Receipt Date: 20160208
  Transmission Date: 20160526
  Serious: Yes (Hospitalization)
  Sender: FDA-Public Use
  Company Number: FR-GLAXOSMITHKLINE-B0957915A

PATIENT
  Age: 50 Year
  Sex: Male

DRUGS (14)
  1. MODOPAR [Suspect]
     Active Substance: BENSERAZIDE HYDROCHLORIDE\LEVODOPA
     Indication: PARKINSON^S DISEASE
     Dosage: UNK, Z
     Route: 065
     Dates: start: 20040906, end: 200604
  2. HEXAQUINE [Concomitant]
     Active Substance: NIAOULI OIL\QUININE BENZOATE\THIAMINE HYDROCHLORIDE
  3. RIFATER [Concomitant]
     Active Substance: ISONIAZID\PYRAZINAMIDE\RIFAMPIN
     Route: 065
  4. PIRILENE [Concomitant]
     Active Substance: PYRAZINAMIDE
     Route: 065
  5. REQUIP [Suspect]
     Active Substance: ROPINIROLE HYDROCHLORIDE
     Dosage: 1 MG, QD
     Dates: start: 20031125
  6. STALEVO [Concomitant]
     Active Substance: CARBIDOPA\ENTACAPONE\LEVODOPA
     Indication: PARKINSON^S DISEASE
     Dosage: UNK, U
     Route: 065
     Dates: start: 200604
  7. RIVOTRIL [Concomitant]
     Active Substance: CLONAZEPAM
     Indication: MYOCLONUS
     Route: 065
     Dates: start: 2004
  8. MOTILIUM [Concomitant]
     Active Substance: DOMPERIDONE
     Route: 065
  9. VITAMIN B6 [Concomitant]
     Active Substance: PYRIDOXINE HYDROCHLORIDE
  10. CELANCE [Concomitant]
     Active Substance: PERGOLIDE MESYLATE
     Indication: PARKINSON^S DISEASE
     Dosage: 1 MG, UNK
     Route: 048
     Dates: start: 20040226
  11. RIVOTRIL [Concomitant]
     Active Substance: CLONAZEPAM
     Indication: ANALGESIC THERAPY
  12. LEVITRA [Concomitant]
     Active Substance: VARDENAFIL HYDROCHLORIDE TRIHYDRATE
     Route: 065
     Dates: start: 2003
  13. MOPRAL [Concomitant]
     Active Substance: OMEPRAZOLE SODIUM
     Route: 065
  14. REQUIP [Suspect]
     Active Substance: ROPINIROLE HYDROCHLORIDE
     Indication: PARKINSON^S DISEASE
     Dosage: UNK, Z
     Route: 065
     Dates: start: 20030821, end: 200709

REACTIONS (11)
  - Gambling disorder [Recovered/Resolved]
  - Impulse-control disorder [Recovered/Resolved]
  - Hallucination [Recovered/Resolved]
  - Insomnia [Unknown]
  - Abnormal behaviour [Recovered/Resolved]
  - Impulsive behaviour [Recovered/Resolved]
  - Incorrect drug administration rate [Unknown]
  - Dopamine dysregulation syndrome [Recovered/Resolved]
  - Compulsive sexual behaviour [Recovered/Resolved]
  - Aggression [Unknown]
  - Somnolence [Unknown]

NARRATIVE: CASE EVENT DATE: 200310
